FAERS Safety Report 8825379 (Version 1)
Quarter: 2012Q4

REPORT INFORMATION
  Report Type: 
  Country: US (occurrence: US)
  Receive Date: 20121004
  Receipt Date: 20121004
  Transmission Date: 20130627
  Serious: No
  Sender: FDA-Public Use
  Company Number: US-VERTEX PHARMACEUTICAL INC.-2012-020596

PATIENT
  Sex: Male
  Weight: 95 kg

DRUGS (12)
  1. VX-950 [Suspect]
     Indication: HEPATITIS C
     Dosage: 750 mg, tid
     Route: 048
  2. VX-950 [Suspect]
     Dosage: UNK
  3. RIBAVIRIN [Concomitant]
     Indication: HEPATITIS C
     Dosage: 200 mg, UNK
  4. PEGASYS [Concomitant]
     Indication: HEPATITIS C
     Dosage: 180 ?g, UNK
  5. ALENDRONATE ARROW [Concomitant]
     Dosage: 35 mg, UNK
  6. OMEPRAZOLE [Concomitant]
     Dosage: 10 mg, UNK
  7. NADOLOL [Concomitant]
     Dosage: 120 mg, UNK
  8. VITAMIN E                          /00110501/ [Concomitant]
     Dosage: 1000 ut, UNK
  9. CALCIUM CITRATE [Concomitant]
     Dosage: 200 mg, UNK
  10. MULTIVITAMIN                       /00097801/ [Concomitant]
  11. FOLIC ACID [Concomitant]
  12. ASPIRIN [Concomitant]
     Dosage: 81 mg, UNK

REACTIONS (12)
  - Influenza like illness [Unknown]
  - Tonsillar disorder [Unknown]
  - Oropharyngeal pain [Unknown]
  - Lymphadenopathy [Unknown]
  - Weight increased [Unknown]
  - Headache [Unknown]
  - Muscle spasms [Unknown]
  - Asthenia [Unknown]
  - Nausea [Unknown]
  - Anaemia [Unknown]
  - Anorectal discomfort [Unknown]
  - Anal pruritus [Unknown]
